FAERS Safety Report 6641950-5 (Version None)
Quarter: 2010Q1

REPORT INFORMATION
  Report Type: 
  Country: None (occurrence: None)
  Receive Date: 20100319
  Receipt Date: 20100316
  Transmission Date: 20100710
  Serious: Yes (Other)
  Sender: FDA-Public Use
  Company Number: PHHY2010NL15867

PATIENT
  Sex: Male

DRUGS (1)
  1. COMTAN [Suspect]
     Dosage: 200 MG, UNK

REACTIONS (2)
  - DIARRHOEA [None]
  - WEIGHT DECREASED [None]
